FAERS Safety Report 9316979 (Version 1)
Quarter: 2013Q2

REPORT INFORMATION
  Report Type: Spontaneous
  Country: US (occurrence: None)
  Receive Date: 20130528
  Receipt Date: 20130528
  Transmission Date: 20140414
  Serious: Yes (Life-Threatening)
  Sender: FDA-Public Use
  Company Number: None

PATIENT
  Sex: 0

DRUGS (1)
  1. DEXTROSE [Suspect]
     Indication: BLOOD GLUCOSE DECREASED
     Dates: start: 20130519, end: 20130519

REACTIONS (1)
  - Cardiac arrest [None]
